FAERS Safety Report 24020936 (Version 2)
Quarter: 2024Q3

REPORT INFORMATION
  Report Type: Spontaneous
  Country: HU (occurrence: HU)
  Receive Date: 20240627
  Receipt Date: 20240712
  Transmission Date: 20241016
  Serious: Yes (Death, Life-Threatening, Hospitalization)
  Sender: TEVA
  Company Number: HU-TEVA-VS-3212569

PATIENT
  Age: 73 Year
  Sex: Male

DRUGS (7)
  1. METHYLPREDNISOLONE [Suspect]
     Active Substance: METHYLPREDNISOLONE
     Indication: Immunosuppressant drug therapy
     Route: 065
  2. TICAGRELOR [Suspect]
     Active Substance: TICAGRELOR
     Indication: Atrial fibrillation
     Route: 065
  3. TIGECYCLINE [Suspect]
     Active Substance: TIGECYCLINE
     Indication: Pseudomonas infection
     Route: 065
  4. EVEROLIMUS [Suspect]
     Active Substance: EVEROLIMUS
     Indication: Immunosuppressant drug therapy
     Route: 065
  5. EVEROLIMUS [Suspect]
     Active Substance: EVEROLIMUS
     Indication: Immunosuppressant drug therapy
     Dosage: DOSE REDUCED
     Route: 065
  6. IMMUNE GLOBULIN [Concomitant]
     Indication: Guillain-Barre syndrome
     Route: 042
  7. ZOTAROLIMUS [Concomitant]
     Active Substance: ZOTAROLIMUS
     Indication: Drug therapy
     Dosage: ZOTAROLIMUS-ELUTING STENT PLACEMENT
     Route: 065

REACTIONS (10)
  - Clostridium difficile infection [Recovered/Resolved]
  - Pneumonia [Recovering/Resolving]
  - Acute kidney injury [Recovering/Resolving]
  - Drug interaction [Fatal]
  - Respiratory failure [Recovering/Resolving]
  - Pseudomonas infection [Recovered/Resolved]
  - Enterococcal infection [Recovered/Resolved]
  - Septic shock [Recovering/Resolving]
  - Stenotrophomonas infection [Fatal]
  - Haemorrhagic pneumonia [Fatal]
